FAERS Safety Report 14081093 (Version 1)
Quarter: 2017Q4

REPORT INFORMATION
  Report Type: Spontaneous
  Country: US (occurrence: US)
  Receive Date: 20171012
  Receipt Date: 20171012
  Transmission Date: 20180321
  Serious: Yes (Disabling)
  Sender: FDA-Public Use
  Company Number: None

PATIENT
  Sex: Female
  Weight: 83.25 kg

DRUGS (11)
  1. AMLODYPINE BESYLATE [Concomitant]
  2. PREDISONE [Concomitant]
     Active Substance: PREDNISONE
  3. EFFEXOR [Concomitant]
     Active Substance: VENLAFAXINE HYDROCHLORIDE
  4. METFORMIN [Suspect]
     Active Substance: METFORMIN HYDROCHLORIDE
     Indication: TYPE 2 DIABETES MELLITUS
     Route: 048
     Dates: start: 20160627, end: 20160630
  5. MULBERRY EXTRACT [Concomitant]
  6. XANAX [Concomitant]
     Active Substance: ALPRAZOLAM
  7. CINNAMON. [Concomitant]
     Active Substance: CINNAMON
  8. METROPOLOL [Concomitant]
     Active Substance: METOPROLOL
  9. TURMERIC [Concomitant]
     Active Substance: HERBALS\TURMERIC
  10. VITAMIN D [Concomitant]
     Active Substance: CHOLECALCIFEROL
  11. VITAMIN B [Concomitant]
     Active Substance: VITAMIN B

REACTIONS (3)
  - Cognitive disorder [None]
  - Disability [None]
  - Polymyalgia rheumatica [None]

NARRATIVE: CASE EVENT DATE: 20160630
